FAERS Safety Report 9816257 (Version 4)
Quarter: 2014Q3

REPORT INFORMATION
  Report Type: Spontaneous
  Country: US (occurrence: US)
  Receive Date: 20140114
  Receipt Date: 20140814
  Transmission Date: 20150326
  Serious: Yes (Life-Threatening, Hospitalization, Other)
  Sender: FDA-Public Use
  Company Number: US-BAYER-2014-002157

PATIENT
  Age: 22 Year
  Sex: Female
  Weight: 68 kg

DRUGS (1)
  1. MIRENA [Suspect]
     Active Substance: LEVONORGESTREL
     Indication: CONTRACEPTION
     Dosage: 20 MCG/24HR, CONT
     Route: 015
     Dates: start: 20081211, end: 20091231

REACTIONS (20)
  - Uterine perforation [None]
  - Genital haemorrhage [None]
  - Injury [None]
  - Pain [None]
  - Pelvic pain [None]
  - Medical device complication [None]
  - Oophorectomy [None]
  - Vomiting [None]
  - Scar [None]
  - Abdominal pain upper [None]
  - Emotional distress [None]
  - Back pain [None]
  - Abdominal pain lower [None]
  - Abortion spontaneous [None]
  - Device issue [None]
  - Infertility female [None]
  - Ectopic pregnancy with contraceptive device [None]
  - Salpingectomy [None]
  - Drug ineffective [None]
  - Uterine pain [None]

NARRATIVE: CASE EVENT DATE: 200910
